FAERS Safety Report 10174214 (Version 2)
Quarter: 2014Q2

REPORT INFORMATION
  Report Type: Spontaneous
  Country: FR (occurrence: FR)
  Receive Date: 20140515
  Receipt Date: 20140515
  Transmission Date: 20141212
  Serious: Yes (Other)
  Sender: FDA-Public Use
  Company Number: FR-BAYER-2014-053969

PATIENT
  Age: 75 Year
  Sex: Male
  Weight: 71 kg

DRUGS (2)
  1. NEXAVAR [Suspect]
     Indication: HEPATOCELLULAR CARCINOMA
     Dosage: 800 MG PER DAY
     Route: 048
     Dates: start: 20120908, end: 20140410
  2. TAHOR [Concomitant]
     Indication: HYPERTENSION

REACTIONS (2)
  - Spinal compression fracture [Not Recovered/Not Resolved]
  - Back pain [Not Recovered/Not Resolved]
